FAERS Safety Report 16760626 (Version 1)
Quarter: 2019Q3

REPORT INFORMATION
  Report Type: Spontaneous
  Country: US (occurrence: US)
  Receive Date: 20190830
  Receipt Date: 20190830
  Transmission Date: 20191005
  Serious: Yes (Other)
  Sender: FDA-Public Use
  Company Number: US-ASTRAZENECA-2019SF20133

PATIENT
  Age: 46 Year
  Sex: Female

DRUGS (5)
  1. BEVACIZUMAB. [Concomitant]
     Active Substance: BEVACIZUMAB
     Indication: NON-SMALL CELL LUNG CANCER
  2. CISPLATIN. [Concomitant]
     Active Substance: CISPLATIN
     Indication: NON-SMALL CELL LUNG CANCER
  3. AFATINIB [Concomitant]
     Active Substance: AFATINIB
     Indication: NON-SMALL CELL LUNG CANCER
  4. OSIMERTINIB. [Suspect]
     Active Substance: OSIMERTINIB
     Indication: NON-SMALL CELL LUNG CANCER
     Route: 048
  5. PEMETREXED. [Concomitant]
     Active Substance: PEMETREXED
     Indication: NON-SMALL CELL LUNG CANCER

REACTIONS (4)
  - Acquired gene mutation [Unknown]
  - Pneumonitis [Unknown]
  - Malignant neoplasm progression [Unknown]
  - Drug resistance [Unknown]
